FAERS Safety Report 17115137 (Version 1)
Quarter: 2019Q4

REPORT INFORMATION
  Report Type: Spontaneous
  Country: US (occurrence: US)
  Receive Date: 20191202
  Receipt Date: 20191202
  Transmission Date: 20200122
  Serious: Yes (Other)
  Sender: FDA-Public Use
  Company Number: None

PATIENT
  Age: 56 Year
  Sex: Male
  Weight: 77.11 kg

DRUGS (11)
  1. MAGNESIUM [Concomitant]
     Active Substance: MAGNESIUM
  2. ESKETAMINE [Suspect]
     Active Substance: ESKETAMINE
     Indication: DEPRESSION
     Route: 045
     Dates: start: 20191016, end: 20191023
  3. TRAMADOL. [Concomitant]
     Active Substance: TRAMADOL
  4. WELLBUTRIN [Concomitant]
     Active Substance: BUPROPION HYDROCHLORIDE
  5. TYLENOL [Concomitant]
     Active Substance: ACETAMINOPHEN
  6. LATUDA [Concomitant]
     Active Substance: LURASIDONE HYDROCHLORIDE
  7. SUMATRIPTAN. [Concomitant]
     Active Substance: SUMATRIPTAN
  8. GABAPENTIN. [Concomitant]
     Active Substance: GABAPENTIN
  9. OXYCODONE [Concomitant]
     Active Substance: OXYCODONE
  10. VITAMIN D [Concomitant]
     Active Substance: VITAMIN D NOS
  11. ALEVE [Concomitant]
     Active Substance: NAPROXEN SODIUM

REACTIONS (11)
  - Panic reaction [None]
  - Throat irritation [None]
  - Somnolence [None]
  - Vomiting [None]
  - Hyperhidrosis [None]
  - Nasal discomfort [None]
  - Nasal discharge discolouration [None]
  - Malaise [None]
  - Physical product label issue [None]
  - Dyspnoea [None]
  - Product prescribing error [None]

NARRATIVE: CASE EVENT DATE: 20191023
